FAERS Safety Report 5417746-9 (Version None)
Quarter: 2007Q3

REPORT INFORMATION
  Report Type: 
  Country: None (occurrence: None)
  Receive Date: 20070815
  Receipt Date: 20070815
  Transmission Date: 20080115
  Serious: Yes (Hospitalization)
  Sender: FDA-Public Use
  Company Number: None

PATIENT
  Sex: Male

DRUGS (2)
  1. NPH INSULIN [Suspect]
     Indication: DIABETES MELLITUS
     Dosage: 18 UNITS QAM  (THERAPY DATES: PRIOR TO ADMISSION
  2. NPH INSULIN [Suspect]
     Indication: DIABETES MELLITUS
     Dosage: 15 UNITS QPM (THERAPY DATES: PRIOR TO ADMISSION)

REACTIONS (1)
  - UNRESPONSIVE TO STIMULI [None]
